FAERS Safety Report 8584067-5 (Version None)
Quarter: 2012Q3

REPORT INFORMATION
  Report Type: 
  Country: None (occurrence: None)
  Receive Date: 20120810
  Receipt Date: 20120723
  Transmission Date: 20120928
  Serious: No
  Sender: FDA-Public Use
  Company Number: US-009507513-1207USA009795

PATIENT

DRUGS (1)
  1. VYTORIN [Suspect]
     Dosage: 10/20 MG, QD
     Route: 048

REACTIONS (4)
  - NECK PAIN [None]
  - MUSCLE DISORDER [None]
  - ARTHRALGIA [None]
  - PAIN IN EXTREMITY [None]
